FAERS Safety Report 15059755 (Version 2)
Quarter: 2019Q3

REPORT INFORMATION
  Report Type: Spontaneous
  Country: US (occurrence: US)
  Receive Date: 20180625
  Receipt Date: 20190919
  Transmission Date: 20191004
  Serious: Yes (Other)
  Sender: FDA-Public Use
  Company Number: US-SA-2018SA098714

PATIENT
  Age: 60 Year
  Sex: Female
  Weight: 117 kg

DRUGS (28)
  1. LISINOPRIL. [Concomitant]
     Active Substance: LISINOPRIL
     Indication: BLOOD PRESSURE MEASUREMENT
     Dosage: UNK, UNK
     Route: 065
     Dates: start: 1999, end: 2011
  2. LISINOPRIL. [Concomitant]
     Active Substance: LISINOPRIL
     Dosage: UNK UNK, UNK
     Route: 065
     Dates: start: 20140204
  3. PRAVASTATIN. [Concomitant]
     Active Substance: PRAVASTATIN
     Dosage: UNK UNK, UNK
     Route: 065
     Dates: start: 20140204
  4. COMPAZINE [Concomitant]
     Active Substance: PROCHLORPERAZINE MALEATE
     Dosage: UNK, UNK
     Route: 065
     Dates: start: 20160531, end: 20161001
  5. N-ACETYLCYSTEINE [Concomitant]
     Active Substance: ACETYLCYSTEINE
     Dosage: UNK
     Dates: start: 20180412
  6. BABY ASPIRIN [Concomitant]
     Active Substance: ASPIRIN
  7. PERTUZUMAB. [Concomitant]
     Active Substance: PERTUZUMAB
     Indication: BREAST CANCER FEMALE
     Dosage: UNK (840 MG LD, 420 MG MD)
  8. PERTUZUMAB. [Concomitant]
     Active Substance: PERTUZUMAB
     Dosage: UNK (840 MG LD, 420 MG MD)
  9. HERCEPTIN [Concomitant]
     Active Substance: TRASTUZUMAB
     Dosage: (6MG /KG) EVERY 21 DAYS X 12 DOSES)
  10. ZOFRAN [Concomitant]
     Active Substance: ONDANSETRON HYDROCHLORIDE
     Dosage: UNK, UNK
     Route: 065
     Dates: start: 20160527, end: 20161001
  11. ZYRTEC [Concomitant]
     Active Substance: CETIRIZINE HYDROCHLORIDE
     Dosage: UNK
     Dates: start: 20160531, end: 20160620
  12. TAXOTERE [Suspect]
     Active Substance: DOCETAXEL
     Indication: BREAST CANCER FEMALE
     Dosage: 80 MG, Q3W
     Route: 042
     Dates: start: 20160527, end: 20160527
  13. PRAVASTATIN. [Concomitant]
     Active Substance: PRAVASTATIN
     Indication: BLOOD CHOLESTEROL
     Dosage: UNK, UNK
     Route: 065
     Dates: start: 1999, end: 2011
  14. ATIVAN [Concomitant]
     Active Substance: LORAZEPAM
     Dosage: UNK, UNK
     Route: 065
     Dates: start: 20160527, end: 20161005
  15. PEPCID [Concomitant]
     Active Substance: FAMOTIDINE
     Dosage: UNK, UNK
     Route: 065
     Dates: start: 20160708, end: 20161201
  16. DOK [Concomitant]
     Active Substance: DOCUSATE SODIUM
     Dosage: UNK, UNK
     Route: 065
     Dates: start: 20160729, end: 20161001
  17. ZARXIO [Concomitant]
     Active Substance: FILGRASTIM-SNDZ
     Dosage: UNK
     Dates: start: 20160527, end: 20160729
  18. PARAPLATIN [Concomitant]
     Active Substance: CARBOPLATIN
     Indication: BREAST CANCER FEMALE
     Dosage: UNK, UNK
     Route: 065
  19. HERCEPTIN [Concomitant]
     Active Substance: TRASTUZUMAB
     Indication: BREAST CANCER FEMALE
     Dosage: UNK, UNK (8 MG/KG LD, 6MG/KG MD)
     Route: 065
  20. PRAVASTATIN. [Concomitant]
     Active Substance: PRAVASTATIN
     Dosage: UNK UNK, UNK
     Route: 065
     Dates: start: 2011, end: 2012
  21. LOMOTIL [Concomitant]
     Active Substance: ATROPINE SULFATE\DIPHENOXYLATE HYDROCHLORIDE
     Dosage: UNK, UNK
     Route: 065
     Dates: start: 20160819, end: 20161001
  22. DIPHENHYDRAMINE HYDROCHLORIDE;LIDOCAINE [Concomitant]
     Dosage: UNK UNK, UNK
     Route: 065
     Dates: start: 20160819, end: 20161001
  23. PROCHLORPERAZINE. [Concomitant]
     Active Substance: PROCHLORPERAZINE
     Dosage: UNK
     Dates: start: 20160527, end: 20161001
  24. TAXOTERE [Suspect]
     Active Substance: DOCETAXEL
     Dosage: 80 MG, Q3W
     Route: 042
     Dates: start: 20160909, end: 20160909
  25. LISINOPRIL. [Concomitant]
     Active Substance: LISINOPRIL
     Dosage: UNK UNK, UNK
     Route: 065
     Dates: start: 2011, end: 2012
  26. NEULASTA [Concomitant]
     Active Substance: PEGFILGRASTIM
     Dosage: UNK, UNK
     Route: 065
     Dates: start: 20160729, end: 20161001
  27. DECADRON [Concomitant]
     Active Substance: DEXAMETHASONE
     Dosage: UNK, UNK
     Route: 065
     Dates: start: 20160526, end: 20161001
  28. NORCO [Concomitant]
     Active Substance: ACETAMINOPHEN\HYDROCODONE BITARTRATE
     Dosage: UNK, UNK
     Route: 065
     Dates: start: 20160527, end: 20160909

REACTIONS (2)
  - Psychological trauma [Unknown]
  - Alopecia [Not Recovered/Not Resolved]

NARRATIVE: CASE EVENT DATE: 20160609
